FAERS Safety Report 17374898 (Version 2)
Quarter: 2020Q2

REPORT INFORMATION
  Report Type: Spontaneous
  Country: US (occurrence: US)
  Receive Date: 20200205
  Receipt Date: 20200410
  Transmission Date: 20200713
  Serious: No
  Sender: FDA-Public Use
  Company Number: US-BIOGEN-2020BI00825385

PATIENT
  Age: 38 Year
  Sex: Female

DRUGS (2)
  1. TECFIDERA [Suspect]
     Active Substance: DIMETHYL FUMARATE
     Indication: MULTIPLE SCLEROSIS
     Route: 048
     Dates: start: 20180918
  2. TECFIDERA [Suspect]
     Active Substance: DIMETHYL FUMARATE
     Route: 048
     Dates: start: 20180919

REACTIONS (9)
  - Liver function test increased [Unknown]
  - Insomnia [Unknown]
  - Flushing [Unknown]
  - Gastrointestinal pain [Unknown]
  - Liver disorder [Unknown]
  - Fatigue [Unknown]
  - Ear discomfort [Unknown]
  - Malaise [Unknown]
  - Hot flush [Unknown]

NARRATIVE: CASE EVENT DATE: 201809
